FAERS Safety Report 4655139-2 (Version None)
Quarter: 2005Q2

REPORT INFORMATION
  Report Type: 
  Country: None (occurrence: None)
  Receive Date: 20050505
  Receipt Date: 20050425
  Transmission Date: 20051028
  Serious: Yes (Hospitalization)
  Sender: FDA-Public Use
  Company Number: FRWYE612625APR05

PATIENT
  Age: 70 Year
  Sex: Male

DRUGS (2)
  1. BISOPROLOL FUMARATE [Suspect]
     Indication: ANGINA PECTORIS
     Dosage: 1 TABLET 1X PER 1 DAY
     Route: 048
     Dates: start: 19950101
  2. CORDIUM (BEPRIDIL HYDROCHLORIDE MONOHYDRATE) [Concomitant]
     Dates: start: 19950101

REACTIONS (5)
  - ABDOMINAL PAIN [None]
  - CONDITION AGGRAVATED [None]
  - CORONARY ARTERY INSUFFICIENCY [None]
  - DRUG INTERACTION [None]
  - TROPONIN INCREASED [None]
